FAERS Safety Report 8298526-6 (Version None)
Quarter: 2012Q2

REPORT INFORMATION
  Report Type: 
  Country: None (occurrence: None)
  Receive Date: 20120419
  Receipt Date: 20120221
  Transmission Date: 20120825
  Serious: No
  Sender: FDA-Public Use
  Company Number: US-ABBOTT-12P-163-0908478-00

PATIENT
  Sex: Female
  Weight: 51.756 kg

DRUGS (1)
  1. LUPRON DEPOT-PED [Suspect]
     Indication: PRECOCIOUS PUBERTY
     Route: 050

REACTIONS (3)
  - DYSURIA [None]
  - BLOOD URINE PRESENT [None]
  - URINARY TRACT INFECTION [None]
